FAERS Safety Report 10749609 (Version 1)
Quarter: 2015Q1

REPORT INFORMATION
  Report Type: Spontaneous
  Country: GR (occurrence: GR)
  Receive Date: 20150129
  Receipt Date: 20150129
  Transmission Date: 20150721
  Serious: Yes (Other)
  Sender: FDA-Public Use
  Company Number: GR-MYLANLABS-2015M1002012

PATIENT

DRUGS (1)
  1. DESMOPRESSIN [Suspect]
     Active Substance: DESMOPRESSIN
     Dosage: ADVICED 2 DOSES OF 300 NG/KG BY IV INJECTION, RECEIVED 1 DOSE DURING SURGERY
     Route: 042

REACTIONS (1)
  - Complications of transplanted kidney [Unknown]
